FAERS Safety Report 5878776-6 (Version None)
Quarter: 2008Q3

REPORT INFORMATION
  Report Type: 
  Country: None (occurrence: None)
  Receive Date: 20080912
  Receipt Date: 20080909
  Transmission Date: 20090109
  Serious: Yes (Hospitalization)
  Sender: FDA-Public Use
  Company Number: JP-SP-2008-01025

PATIENT
  Age: 69 Year
  Sex: Female

DRUGS (6)
  1. IMMUCYST [Suspect]
     Indication: BLADDER CANCER
     Route: 043
     Dates: start: 20070402, end: 20070507
  2. IMMUCYST [Suspect]
     Route: 043
     Dates: start: 20070402, end: 20070507
  3. IMMUCYST [Suspect]
     Route: 043
     Dates: start: 20070402, end: 20070507
  4. IMMUCYST [Suspect]
     Route: 043
     Dates: start: 20070402, end: 20070507
  5. IMMUCYST [Suspect]
     Route: 043
     Dates: start: 20070402, end: 20070507
  6. AMLODIPINE BESYLATE [Concomitant]
     Dates: start: 20070402, end: 20070507

REACTIONS (7)
  - ANAEMIA [None]
  - ARTHRALGIA [None]
  - C-REACTIVE PROTEIN INCREASED [None]
  - DYSURIA [None]
  - HAEMOGLOBIN DECREASED [None]
  - WHITE BLOOD CELL COUNT INCREASED [None]
  - WHITE BLOOD CELLS URINE POSITIVE [None]
